FAERS Safety Report 14631474 (Version 4)
Quarter: 2018Q2

REPORT INFORMATION
  Report Type: Report from Study
  Country: US (occurrence: US)
  Receive Date: 20180313
  Receipt Date: 20180511
  Transmission Date: 20180711
  Serious: Yes (Other)
  Sender: FDA-Public Use
  Company Number: US-GILEAD-2018-0325602

PATIENT
  Age: 67 Year
  Sex: Female
  Weight: 80.73 kg

DRUGS (13)
  1. SILDENAFIL. [Concomitant]
     Active Substance: SILDENAFIL
  2. METHOTREXATE. [Concomitant]
     Active Substance: METHOTREXATE
  3. AMBRISENTAN [Suspect]
     Active Substance: AMBRISENTAN
     Indication: RHEUMATOID ARTHRITIS
  4. NORVASC [Concomitant]
     Active Substance: AMLODIPINE BESYLATE
  5. OMEPRAZOLE. [Concomitant]
     Active Substance: OMEPRAZOLE
  6. LASIX [Concomitant]
     Active Substance: FUROSEMIDE
  7. FLOVENT [Concomitant]
     Active Substance: FLUTICASONE PROPIONATE
  8. AMBRISENTAN [Suspect]
     Active Substance: AMBRISENTAN
     Indication: PULMONARY ARTERIAL HYPERTENSION
     Dosage: 5 MG, QD
     Route: 065
     Dates: start: 20180103
  9. AMBRISENTAN [Suspect]
     Active Substance: AMBRISENTAN
     Indication: CONNECTIVE TISSUE DISORDER
  10. PREDNISONE. [Concomitant]
     Active Substance: PREDNISONE
  11. ORENCIA [Concomitant]
     Active Substance: ABATACEPT
  12. NEURONTIN [Concomitant]
     Active Substance: GABAPENTIN
  13. SINGULAIR [Concomitant]
     Active Substance: MONTELUKAST SODIUM

REACTIONS (2)
  - Blister [Not Recovered/Not Resolved]
  - Deep vein thrombosis [Not Recovered/Not Resolved]

NARRATIVE: CASE EVENT DATE: 20180221
